FAERS Safety Report 7009695-X (Version None)
Quarter: 2010Q3

REPORT INFORMATION
  Report Type: 
  Country: None (occurrence: None)
  Receive Date: 20100923
  Receipt Date: 20100916
  Transmission Date: 20110219
  Serious: Yes (Other)
  Sender: FDA-Public Use
  Company Number: US-PFIZER INC-2010092457

PATIENT
  Sex: Male
  Weight: 72.6 kg

DRUGS (3)
  1. LIPITOR [Suspect]
     Indication: BLOOD CHOLESTEROL INCREASED
     Dosage: 40 MG, 1X/DAY AT BEDTIME
     Route: 048
     Dates: start: 20100421, end: 20100721
  2. LIPITOR [Suspect]
     Indication: HYPERCHOLESTEROLAEMIA
  3. LOTREL [Suspect]
     Indication: HYPERTENSION
     Dosage: [AMLODIPINE 5 MG], [BENAZEPRIL HYDROCHLORIDE 10 MG] DAILY
     Route: 048

REACTIONS (5)
  - EYE PAIN [None]
  - EYE PRURITUS [None]
  - OCULAR DISCOMFORT [None]
  - OPTIC NEURITIS [None]
  - VISION BLURRED [None]
